FAERS Safety Report 11212134 (Version 2)
Quarter: 2015Q2

REPORT INFORMATION
  Report Type: Spontaneous
  Country: NO (occurrence: NO)
  Receive Date: 20150623
  Receipt Date: 20150624
  Transmission Date: 20150821
  Serious: Yes (Hospitalization, Other)
  Sender: FDA-Public Use
  Company Number: NO-BAYER-2015-350170

PATIENT
  Age: 34 Year
  Sex: Female
  Weight: 59 kg

DRUGS (1)
  1. MIRENA [Suspect]
     Active Substance: LEVONORGESTREL
     Indication: CONTRACEPTION
     Dosage: 20 MCG/24HR, CONT
     Route: 015
     Dates: start: 20141210, end: 20150109

REACTIONS (7)
  - Speech disorder [Recovering/Resolving]
  - Pain in jaw [Recovering/Resolving]
  - Limb discomfort [Recovering/Resolving]
  - Pericarditis [Recovering/Resolving]
  - Chest pain [Recovering/Resolving]
  - Myocarditis [Recovering/Resolving]
  - Extrasystoles [Recovering/Resolving]

NARRATIVE: CASE EVENT DATE: 20150104
